FAERS Safety Report 10233166 (Version 2)
Quarter: 2015Q1

REPORT INFORMATION
  Report Type: Spontaneous
  Country: US (occurrence: US)
  Receive Date: 20140612
  Receipt Date: 20150317
  Transmission Date: 20150720
  Serious: No
  Sender: FDA-Public Use
  Company Number: US-009507513-1405USA009267

PATIENT

DRUGS (1)
  1. COPPERTONE KIDS SPF 50 SPRAY [Suspect]
     Active Substance: AVOBENZONE\HOMOSALATE\OCTISALATE\OCTOCRYLENE\OXYBENZONE
     Indication: PRODUCT USED FOR UNKNOWN INDICATION
     Dosage: UNK, UNKNOWN
     Route: 061
     Dates: start: 20140512

REACTIONS (1)
  - Sunburn [Unknown]

NARRATIVE: CASE EVENT DATE: 20140512
